FAERS Safety Report 19210473 (Version 1)
Quarter: 2021Q2

REPORT INFORMATION
  Report Type: Spontaneous
  Country: US (occurrence: US)
  Receive Date: 20210504
  Receipt Date: 20210504
  Transmission Date: 20210717
  Serious: Yes (Death)
  Sender: FDA-Public Use
  Company Number: US-ASTRAZENECA-2021A382719

PATIENT

DRUGS (2)
  1. LETROZOLE. [Suspect]
     Active Substance: LETROZOLE
     Indication: BREAST CANCER STAGE IV
     Route: 048
     Dates: start: 20190102, end: 20200503
  2. FULVESTRANT. [Suspect]
     Active Substance: FULVESTRANT
     Indication: TOXICITY TO VARIOUS AGENTS
     Route: 030
     Dates: start: 20200619, end: 20201113

REACTIONS (2)
  - Cardiac arrest [Fatal]
  - Hypovolaemic shock [Fatal]

NARRATIVE: CASE EVENT DATE: 20201111
